FAERS Safety Report 17667263 (Version 1)
Quarter: 2020Q2

REPORT INFORMATION
  Report Type: Spontaneous
  Country: US (occurrence: US)
  Receive Date: 20200414
  Receipt Date: 20200414
  Transmission Date: 20200713
  Serious: No
  Sender: FDA-Public Use
  Company Number: US-CELGENEUS-USA-20200403402

PATIENT
  Sex: Female

DRUGS (1)
  1. FEDRATINIB [Suspect]
     Active Substance: FEDRATINIB
     Indication: MYELOPROLIFERATIVE NEOPLASM
     Dosage: 400 MILLIGRAM
     Route: 048
     Dates: start: 20191213

REACTIONS (1)
  - Myeloproliferative neoplasm [Not Recovered/Not Resolved]
